FAERS Safety Report 4963495-0 (Version None)
Quarter: 2006Q1

REPORT INFORMATION
  Report Type: 
  Country: None (occurrence: None)
  Receive Date: 20060329
  Receipt Date: 20060213
  Transmission Date: 20060701
  Serious: Yes (Hospitalization)
  Sender: FDA-Public Use
  Company Number: 600905

PATIENT
  Age: 59 Year
  Sex: Female
  Weight: 105.6 kg

DRUGS (7)
  1. POLYGAM S/D [Suspect]
     Indication: IDIOPATHIC THROMBOCYTOPENIC PURPURA
     Dosage: 110 GM; ONCE; IV
     Route: 042
     Dates: start: 20020503, end: 20020504
  2. DANAZOL [Concomitant]
  3. METOPROLOL [Concomitant]
  4. RAMIPRIL [Concomitant]
  5. CALCIUM CARBONATE [Concomitant]
  6. ALENDRONATE SODIUM [Concomitant]
  7. LASIX [Concomitant]

REACTIONS (8)
  - ABDOMINAL PAIN UPPER [None]
  - ACUTE MYOCARDIAL INFARCTION [None]
  - BLOOD PRESSURE INCREASED [None]
  - MYOCARDITIS [None]
  - NAUSEA [None]
  - PURPURA [None]
  - RENAL IMPAIRMENT [None]
  - VOMITING [None]
